FAERS Safety Report 4642327-4 (Version None)
Quarter: 2005Q2

REPORT INFORMATION
  Report Type: 
  Country: None (occurrence: None)
  Receive Date: 20050421
  Receipt Date: 20050421
  Transmission Date: 20051028
  Serious: Yes (Life-Threatening, Hospitalization)
  Sender: FDA-Public Use
  Company Number: None

PATIENT
  Age: 84 Year
  Sex: Male
  Weight: 72.5755 kg

DRUGS (11)
  1. AREDIA [Suspect]
     Indication: BONE DISORDER
     Dosage: 90MG  MONTHLY  INTRAVENOU
     Route: 042
     Dates: start: 20030422, end: 20030422
  2. AREDIA [Suspect]
     Indication: BONE DISORDER
     Dosage: 90MG  MONTHLY  INTRAVENOU
     Route: 042
     Dates: start: 20030520, end: 20030520
  3. DURAGESIC [Concomitant]
  4. LANTUS [Concomitant]
  5. PHOSLO [Concomitant]
  6. NEURONTIN [Concomitant]
  7. FLOMAX [Concomitant]
  8. PEPCID [Concomitant]
  9. COUMADIN [Concomitant]
  10. CARDIZEM [Concomitant]
  11. DURAGESIC-100 [Concomitant]

REACTIONS (1)
  - OSTEONECROSIS [None]
